FAERS Safety Report 9413748 (Version 1)
Quarter: 2013Q3

REPORT INFORMATION
  Report Type: Spontaneous
  Country: AT (occurrence: AT)
  Receive Date: 20130722
  Receipt Date: 20130722
  Transmission Date: 20140515
  Serious: Yes (Other)
  Sender: FDA-Public Use
  Company Number: AT-ROXANE LABORATORIES, INC.-2013-RO-01175RO

PATIENT
  Age: 54 Year
  Sex: Female

DRUGS (4)
  1. LORAZEPAM [Suspect]
     Indication: MAJOR DEPRESSION
     Dosage: 3 MG
  2. QUETIAPINE FUMARATE [Suspect]
     Indication: MAJOR DEPRESSION
     Dosage: 50 MG
  3. QUETIAPINE FUMARATE [Suspect]
     Dosage: 100 MG
  4. AMITRIPTYLINE [Suspect]
     Indication: MAJOR DEPRESSION
     Dosage: 50 MG

REACTIONS (1)
  - Restless legs syndrome [Recovered/Resolved]
